FAERS Safety Report 25037933 (Version 1)
Quarter: 2025Q1

REPORT INFORMATION
  Report Type: Spontaneous
  Country: US (occurrence: US)
  Receive Date: 20250304
  Receipt Date: 20250304
  Transmission Date: 20250409
  Serious: No
  Sender: BIOMARIN
  Company Number: US-BIOMARINAP-US-2025-164245

PATIENT

DRUGS (1)
  1. VOXZOGO [Suspect]
     Active Substance: VOSORITIDE
     Indication: Osteochondrodysplasia
     Dosage: UNK, QD
     Route: 058
     Dates: start: 20220326

REACTIONS (4)
  - Increased appetite [Unknown]
  - Weight increased [Unknown]
  - Acanthosis nigricans [Unknown]
  - Amenorrhoea [Unknown]
